FAERS Safety Report 17881068 (Version 10)
Quarter: 2021Q4

REPORT INFORMATION
  Report Type: Report from Study
  Country: CA (occurrence: CA)
  Receive Date: 20200610
  Receipt Date: 20211222
  Transmission Date: 20220303
  Serious: Yes (Hospitalization, Other)
  Sender: FDA-Public Use
  Company Number: CA-OTSUKA-2020_013080

PATIENT
  Age: 21 Year
  Sex: Female

DRUGS (4)
  1. ARIPIPRAZOLE [Suspect]
     Active Substance: ARIPIPRAZOLE
     Indication: Product used for unknown indication
     Dosage: 300 MG, EVERY 4 WEEKS
     Route: 030
     Dates: end: 20210929
  2. ARIPIPRAZOLE [Suspect]
     Active Substance: ARIPIPRAZOLE
     Dosage: 400 MG
     Route: 065
  3. EFFEXOR [Concomitant]
     Active Substance: VENLAFAXINE HYDROCHLORIDE
     Indication: Product used for unknown indication
     Dosage: UNK
     Route: 065
  4. VENLAFAXINE HYDROCHLORIDE [Concomitant]
     Active Substance: VENLAFAXINE HYDROCHLORIDE
     Indication: Product used for unknown indication
     Dosage: UNK
     Route: 065

REACTIONS (13)
  - Multiple sclerosis [Not Recovered/Not Resolved]
  - Spinal cord disorder [Not Recovered/Not Resolved]
  - Coeliac disease [Unknown]
  - Lymphoma [Not Recovered/Not Resolved]
  - Ovarian cyst [Unknown]
  - Joint dislocation [Recovered/Resolved]
  - Mental disorder [Unknown]
  - Blood pressure increased [Not Recovered/Not Resolved]
  - Injection site pain [Recovered/Resolved]
  - Underdose [Unknown]
  - Product availability issue [Unknown]
  - Inappropriate schedule of product administration [Unknown]
  - Medication error [Unknown]

NARRATIVE: CASE EVENT DATE: 20200527
